FAERS Safety Report 6501433-X (Version None)
Quarter: 2009Q4

REPORT INFORMATION
  Report Type: 
  Country: None (occurrence: None)
  Receive Date: 20091216
  Receipt Date: 20091210
  Transmission Date: 20100525
  Serious: Yes (Hospitalization)
  Sender: FDA-Public Use
  Company Number: CH-BAYER-200942271GPV

PATIENT
  Age: 74 Year
  Sex: Female

DRUGS (4)
  1. ASPIRIN [Suspect]
     Indication: CORONARY ANGIOPLASTY
     Dosage: TOTAL DAILY DOSE: 100 MG  UNIT DOSE: 100 MG
     Route: 048
     Dates: start: 20080101
  2. COVERSUM [Suspect]
     Indication: MYOCARDIAL ISCHAEMIA
     Dosage: TOTAL DAILY DOSE: 4 MG
     Route: 048
     Dates: start: 20090301
  3. SORTIS [Suspect]
     Indication: HYPERLIPIDAEMIA
     Dosage: TOTAL DAILY DOSE: 20 MG
     Route: 048
     Dates: start: 20040101, end: 20091126
  4. BELOC ZOK [Concomitant]
     Indication: MYOCARDIAL ISCHAEMIA
     Dosage: TOTAL DAILY DOSE: 50 MG
     Route: 048
     Dates: start: 20090201

REACTIONS (1)
  - PANCREATITIS ACUTE [None]
